FAERS Safety Report 19039196 (Version 1)
Quarter: 2021Q1

REPORT INFORMATION
  Report Type: Spontaneous
  Country: US (occurrence: US)
  Receive Date: 20210322
  Receipt Date: 20210322
  Transmission Date: 20210420
  Serious: No
  Sender: FDA-Public Use
  Company Number: US-TEVA-2021-US-1893616

PATIENT
  Age: 48 Year
  Sex: Female

DRUGS (2)
  1. ESTRADIOL TEVA [Suspect]
     Active Substance: ESTRADIOL
     Route: 065
     Dates: start: 202004
  2. PROGESTERONE. [Suspect]
     Active Substance: PROGESTERONE
     Route: 065

REACTIONS (2)
  - Drug ineffective [Unknown]
  - Hot flush [Unknown]
